FAERS Safety Report 8849058 (Version 2)
Quarter: 2020Q1

REPORT INFORMATION
  Report Type: Spontaneous
  Country: US (occurrence: US)
  Receive Date: 20121019
  Receipt Date: 20200210
  Transmission Date: 20200409
  Serious: Yes (Hospitalization, Other)
  Sender: FDA-Public Use
  Company Number: US-009507513-1105USA01173

PATIENT
  Sex: Female
  Weight: 75.98 kg

DRUGS (6)
  1. CORTICOSTEROIDS (UNSPECIFIED) [Concomitant]
     Active Substance: UNSPECIFIED INGREDIENT
     Dates: start: 1995
  2. FOSAMAX [Suspect]
     Active Substance: ALENDRONATE SODIUM
     Dosage: 70 MG, QW
     Route: 048
     Dates: start: 20050113, end: 20080622
  3. FOSAMAX [Suspect]
     Active Substance: ALENDRONATE SODIUM
     Dosage: UNK
     Route: 048
     Dates: start: 20070921
  4. ACTONEL [Concomitant]
     Active Substance: RISEDRONATE SODIUM
     Indication: OSTEOPENIA
     Route: 048
     Dates: start: 2003, end: 2005
  5. VITAMINS (UNSPECIFIED) [Concomitant]
     Active Substance: VITAMINS
     Dosage: UNK UNK, QD
  6. HORMONES (UNSPECIFIED) [Concomitant]
     Active Substance: UNSPECIFIED INGREDIENT
     Dates: start: 2004, end: 2006

REACTIONS (104)
  - Femur fracture [Recovered/Resolved]
  - Social avoidant behaviour [Unknown]
  - Osteoarthritis [Unknown]
  - Rhinitis allergic [Unknown]
  - Rectocele [Unknown]
  - Uterovaginal prolapse [Unknown]
  - Foot fracture [Unknown]
  - Coccydynia [Unknown]
  - Lumbar spinal stenosis [Unknown]
  - Meniscus injury [Unknown]
  - Neuropathy peripheral [Unknown]
  - Radius fracture [Unknown]
  - Diverticulitis [Unknown]
  - Device dislocation [Recovered/Resolved]
  - Soft tissue infection [Unknown]
  - Device failure [Unknown]
  - Generalised anxiety disorder [Not Recovered/Not Resolved]
  - Fall [Unknown]
  - Ankle fracture [Unknown]
  - Hypercalcaemia [Unknown]
  - Abdominal pain lower [Unknown]
  - Fibromyalgia [Unknown]
  - Fall [Unknown]
  - Uterine atrophy [Unknown]
  - Articular calcification [Unknown]
  - Joint effusion [Unknown]
  - Femur fracture [Unknown]
  - Faecaloma [Unknown]
  - Radius fracture [Unknown]
  - Radius fracture [Unknown]
  - Weight increased [Unknown]
  - Night sweats [Unknown]
  - Post-traumatic stress disorder [Unknown]
  - Foot fracture [Unknown]
  - Visual impairment [Unknown]
  - Glossitis [Unknown]
  - Candida infection [Unknown]
  - Arthralgia [Unknown]
  - Intervertebral disc protrusion [Unknown]
  - Hypokalaemia [Unknown]
  - Uterine disorder [Unknown]
  - Hot flush [Unknown]
  - Decreased appetite [Unknown]
  - Haematoma [Unknown]
  - Neuralgia [Unknown]
  - Pain in extremity [Unknown]
  - Varicose vein [Unknown]
  - Adverse reaction [Unknown]
  - Herpes zoster [Unknown]
  - Pain in extremity [Unknown]
  - Postoperative heterotopic calcification [Unknown]
  - Osteoarthritis [Unknown]
  - Musculoskeletal pain [Unknown]
  - Porphyria non-acute [Unknown]
  - Autonomic neuropathy [Unknown]
  - Lumbar spinal stenosis [Unknown]
  - Blood calcium decreased [Unknown]
  - Alopecia [Unknown]
  - Premature ageing [Unknown]
  - Stress [Unknown]
  - Osteoarthritis [Unknown]
  - Acute sinusitis [Unknown]
  - Neuritis [Unknown]
  - Lumbosacral radiculopathy [Unknown]
  - Bone disorder [Unknown]
  - Spondylitis [Unknown]
  - Low turnover osteopathy [Unknown]
  - Insomnia [Unknown]
  - Cystocele [Unknown]
  - Complex regional pain syndrome [Unknown]
  - Impaired fasting glucose [Unknown]
  - Synovial cyst [Unknown]
  - Phlebolith [Unknown]
  - Pain in extremity [Unknown]
  - Intervertebral disc disorder [Unknown]
  - Tendon rupture [Unknown]
  - Spondylolisthesis [Unknown]
  - Patellofemoral pain syndrome [Unknown]
  - Depression [Unknown]
  - Lymphadenopathy [Unknown]
  - Fall [Unknown]
  - Chondrocalcinosis [Unknown]
  - Exostosis [Unknown]
  - Fall [Unknown]
  - Mass [Unknown]
  - Fracture malunion [Unknown]
  - Lumbar radiculopathy [Unknown]
  - Depression [Not Recovered/Not Resolved]
  - Drug hypersensitivity [Unknown]
  - Sensory disturbance [Unknown]
  - Bone loss [Unknown]
  - Increased tendency to bruise [Unknown]
  - Influenza [Unknown]
  - Spinal osteoarthritis [Unknown]
  - Stress fracture [Unknown]
  - Breast cancer [Unknown]
  - Vitamin D decreased [Not Recovered/Not Resolved]
  - Fall [Unknown]
  - Lacrimation decreased [Unknown]
  - Chondropathy [Unknown]
  - Bone pain [Unknown]
  - Diarrhoea [Unknown]
  - Bursitis [Recovered/Resolved with Sequelae]
  - Arthralgia [Unknown]

NARRATIVE: CASE EVENT DATE: 200504
